FAERS Safety Report 5592332-9 (Version None)
Quarter: 2008Q1

REPORT INFORMATION
  Report Type: 
  Country: None (occurrence: None)
  Receive Date: 20080115
  Receipt Date: 20071214
  Transmission Date: 20080703
  Serious: Yes (Death)
  Sender: FDA-Public Use
  Company Number: BR-PFIZER INC-2008003174

PATIENT
  Sex: Female

DRUGS (2)
  1. REVATIO [Suspect]
     Indication: PULMONARY HYPERTENSION
     Route: 048
  2. REVATIO [Suspect]
     Indication: SYSTEMIC SCLEROSIS

REACTIONS (1)
  - POST PROCEDURAL COMPLICATION [None]
